FAERS Safety Report 10190552 (Version 2)
Quarter: 2014Q3

REPORT INFORMATION
  Report Type: Report from Study
  Country: DE (occurrence: DE)
  Receive Date: 20140523
  Receipt Date: 20140725
  Transmission Date: 20150326
  Serious: Yes (Life-Threatening)
  Sender: FDA-Public Use
  Company Number: DE-ROCHE-1406352

PATIENT
  Age: 58 Year
  Sex: Female

DRUGS (5)
  1. DEKRISTOL [Concomitant]
     Active Substance: CHOLECALCIFEROL
  2. RITUXIMAB [Suspect]
     Active Substance: RITUXIMAB
     Indication: RHEUMATOID ARTHRITIS
     Dosage: MOST RECENT DOSE OF RITUXIMAB ON 15/MAY/2014
     Route: 065
  3. INSULIN [Concomitant]
     Active Substance: INSULIN NOS
  4. XAGRID [Concomitant]
     Active Substance: ANAGRELIDE HYDROCHLORIDE
  5. ENAHEXAL [Concomitant]
     Active Substance: ENALAPRIL MALEATE

REACTIONS (1)
  - Haematopoietic neoplasm [Not Recovered/Not Resolved]

NARRATIVE: CASE EVENT DATE: 20140414
